FAERS Safety Report 21785252 (Version 1)
Quarter: 2022Q4

REPORT INFORMATION
  Report Type: Spontaneous
  Country: US (occurrence: US)
  Receive Date: 20221227
  Receipt Date: 20221227
  Transmission Date: 20230112
  Serious: No
  Sender: FDA-Public Use
  Company Number: US-Calliditas-2022CAL00626

PATIENT
  Age: 75 Year
  Sex: Female

DRUGS (1)
  1. TARPEYO [Suspect]
     Active Substance: BUDESONIDE
     Indication: Haematuria
     Dosage: 16 MG (4 MG CAPSULES) DAILY
     Route: 048
     Dates: start: 20221202

REACTIONS (6)
  - Discomfort [Unknown]
  - Fatigue [Recovering/Resolving]
  - Dizziness [Unknown]
  - Blood pressure increased [Unknown]
  - Skin discolouration [Unknown]
  - Off label use [Unknown]
